FAERS Safety Report 12388211 (Version 1)
Quarter: 2016Q2

REPORT INFORMATION
  Report Type: Spontaneous
  Country: US (occurrence: None)
  Receive Date: 20160519
  Receipt Date: 20160519
  Transmission Date: 20160815
  Serious: No
  Sender: FDA-Public Use
  Company Number: None

PATIENT
  Age: 26 Year
  Sex: Female
  Weight: 57.61 kg

DRUGS (2)
  1. SERTRALINE HCL [Concomitant]
     Active Substance: SERTRALINE HYDROCHLORIDE
  2. PRAZOSIN, 1 MG MYLAN [Suspect]
     Active Substance: PRAZOSIN
     Indication: SLEEP TERROR
     Route: 048
     Dates: start: 20160504, end: 20160511

REACTIONS (2)
  - Chest pain [None]
  - Movement disorder [None]

NARRATIVE: CASE EVENT DATE: 20160505
